FAERS Safety Report 4577111-3 (Version None)
Quarter: 2005Q1

REPORT INFORMATION
  Report Type: 
  Country: None (occurrence: None)
  Receive Date: 20050208
  Receipt Date: 20050131
  Transmission Date: 20050727
  Serious: Yes (Disabling)
  Sender: FDA-Public Use
  Company Number: TPA2005A00118

PATIENT
  Sex: Female
  Weight: 85.7298 kg

DRUGS (1)
  1. ACTOS [Suspect]
     Dosage: PER ORAL
     Route: 048
     Dates: start: 20050113, end: 20030115

REACTIONS (7)
  - ABASIA [None]
  - APHASIA [None]
  - ARTHROPATHY [None]
  - CHONDROPATHY [None]
  - MALAISE [None]
  - PARALYSIS [None]
  - TENDON DISORDER [None]
